FAERS Safety Report 25388214 (Version 1)
Quarter: 2025Q2

REPORT INFORMATION
  Report Type: Spontaneous
  Country: JP (occurrence: JP)
  Receive Date: 20250603
  Receipt Date: 20250603
  Transmission Date: 20250717
  Serious: No
  Sender: ALKEM
  Company Number: JP-ALKEM LABORATORIES LIMITED-JP-ALKEM-2025-04512

PATIENT
  Age: 66 Year
  Sex: Male

DRUGS (5)
  1. VANCOMYCIN [Suspect]
     Active Substance: VANCOMYCIN
     Indication: Clostridium difficile infection
     Dosage: 125 MILLIGRAM, QID (FOUR TIMES DAILY) (1ST COURSE)
     Route: 048
  2. VANCOMYCIN [Suspect]
     Active Substance: VANCOMYCIN
     Dosage: 125 MILLIGRAM, QID (FOUR TIMES DAILY) (2ND COURSE)
     Route: 048
  3. FIDAXOMICIN [Concomitant]
     Active Substance: FIDAXOMICIN
     Indication: Clostridium difficile infection
     Dosage: 200 MILLIGRAM, BID (TWICE DAILY)
     Route: 065
  4. FIDAXOMICIN [Concomitant]
     Active Substance: FIDAXOMICIN
     Dosage: 200 MILLIGRAM, BID (TWICE DAILY) (EXTENDED-PULSED)
     Route: 065
  5. FIDAXOMICIN [Concomitant]
     Active Substance: FIDAXOMICIN
     Route: 065

REACTIONS (1)
  - Treatment failure [Unknown]
